FAERS Safety Report 6568721-2 (Version None)
Quarter: 2010Q1

REPORT INFORMATION
  Report Type: 
  Country: None (occurrence: None)
  Receive Date: 20100203
  Receipt Date: 20100201
  Transmission Date: 20100710
  Serious: Yes (Hospitalization)
  Sender: FDA-Public Use
  Company Number: GXKR2009DE02378

PATIENT
  Age: 77 Year
  Sex: Female
  Weight: 88 kg

DRUGS (6)
  1. ACETYLSALICYLIC ACID SRT [Suspect]
     Indication: PLATELET AGGREGATION INHIBITION
     Dosage: 100 MG, QD
     Route: 048
     Dates: end: 20080804
  2. REWODINA ^ARZNEIMITTELWERK^ [Suspect]
     Indication: PAIN
     Dosage: 50 MG, BID
     Route: 048
     Dates: start: 20080731, end: 20080731
  3. ALLOPURINOL [Concomitant]
     Indication: GOUT
     Dosage: 300 MG, QD
     Route: 048
     Dates: end: 20080804
  4. LOSARTAN POTASSIUM AND HYDROCHLOROTHIAZIDE [Concomitant]
     Indication: HYPERTENSION
     Dosage: 12.5 MG + 50 MG DAILY
     Route: 048
     Dates: end: 20080804
  5. STRONTIUM RANELATE [Concomitant]
     Indication: OSTEOPOROSIS
     Dosage: 2 G, UNK
     Route: 048
  6. VITAMIN D3 [Concomitant]
     Indication: OSTEOPOROSIS
     Dosage: 0.025 MG, QD
     Route: 048

REACTIONS (1)
  - DIVERTICULUM INTESTINAL HAEMORRHAGIC [None]
